FAERS Safety Report 9563591 (Version 1)
Quarter: 2013Q3

REPORT INFORMATION
  Report Type: Spontaneous
  Country: DE (occurrence: None)
  Receive Date: 20130926
  Receipt Date: 20130926
  Transmission Date: 20140515
  Serious: Yes (Hospitalization)
  Sender: FDA-Public Use
  Company Number: SYM-2013-10984

PATIENT
  Age: 49 Year
  Sex: Male

DRUGS (14)
  1. FLUOROURACIL [Suspect]
     Indication: COLORECTAL CANCER METASTATIC
     Dates: start: 20130416, end: 20130416
  2. AFLIBERCEPT (AFLIBERCEPT) (SOLUTION FOR INFUSION) (AFLIBERCEPT) [Suspect]
     Indication: COLORECTAL CANCER METASTATIC
     Dosage: [10052362 - METASTIC COLORECTAL CANCER]
     Dates: start: 20130416, end: 20130416
  3. IRINOTECAN (IRINOTECAN) (SOLUTION FOR INFUSION) (IRINOTECAN) [Suspect]
     Indication: COLORECTAL CANCER METASTATIC
     Dates: start: 20130416, end: 20130416
  4. LEUCOVORIN [Suspect]
     Indication: COLORECTAL CANCER METASTATIC
     Dates: start: 20130416, end: 20130416
  5. HEPARIN GROUP (HEPARIN GROUP) [Concomitant]
  6. MIRTAZAPINE (MIRTAZAPINE) (MIRTAZAPINE) [Concomitant]
  7. PANTOZOL (PANTOPRAZOLE SODIUM SEQUIHYDRATE) (PANTOPRAZOLE SODIUM SESQUIHYDRATE) [Concomitant]
  8. LASIX (FUROSEMIDE) (FUROSEMIDE) [Concomitant]
  9. ACE INHIBITOR NOS (AE INHIBITORS) (NULL) [Concomitant]
  10. ALLOPURINOL (ALLOPURINOL) (ALLOPURINOL) [Concomitant]
  11. ANTIBIOTICS (ANTIBIOTICS) [Concomitant]
  12. AMLODIPINE (AMLODIPINE) (AMLODIPINE) [Concomitant]
  13. MOVICOL (MOVICOL / 01749801 / ) (SODIUM BICARBONATE, POTASSIUM CHLORIDE, SODIUM CHLORIDE, MACOGOL 3350) [Concomitant]
  14. FORTECORTIN (DEXAMETHASONE) (DEXAMETHASONE) [Concomitant]

REACTIONS (6)
  - Infection [None]
  - Leukocytosis [None]
  - C-reactive protein increased [None]
  - Anaemia [None]
  - Circulatory collapse [None]
  - Stoma site haemorrhage [None]
